FAERS Safety Report 17077908 (Version 1)
Quarter: 2019Q4

REPORT INFORMATION
  Report Type: Spontaneous
  Country: NL (occurrence: NL)
  Receive Date: 20191126
  Receipt Date: 20191126
  Transmission Date: 20200122
  Serious: Yes (Death, Other)
  Sender: FDA-Public Use
  Company Number: NL-BAUSCH-BL-2019-062822

PATIENT
  Age: 23 Year
  Sex: Male

DRUGS (2)
  1. OFLOXACINE [Suspect]
     Active Substance: OFLOXACIN
     Indication: CORNEAL INFILTRATES
     Route: 065
     Dates: start: 20191031, end: 201911
  2. OFLOXACINE [Suspect]
     Active Substance: OFLOXACIN
     Indication: CORNEAL INFILTRATES
     Dosage: AT NIGHT
     Route: 065
     Dates: start: 20191031, end: 201911

REACTIONS (1)
  - Angioedema [Unknown]

NARRATIVE: CASE EVENT DATE: 20191104
